FAERS Safety Report 5682297-3 (Version None)
Quarter: 2008Q1

REPORT INFORMATION
  Report Type: 
  Country: None (occurrence: None)
  Receive Date: 20080327
  Receipt Date: 20080320
  Transmission Date: 20080703
  Serious: Yes (Other)
  Sender: FDA-Public Use
  Company Number: PHBS2008NL03502

PATIENT
  Sex: Male

DRUGS (6)
  1. STALEVO 100 [Suspect]
     Indication: PARKINSON'S DISEASE
     Dosage: 200 MG, QID
     Route: 065
     Dates: start: 20050111, end: 20071201
  2. SIFROL [Suspect]
     Indication: PARKINSON'S DISEASE
     Route: 065
     Dates: start: 20020806, end: 20071201
  3. SINEMET CR [Suspect]
     Dosage: 200/50 MG 4 TIMES/D
     Route: 065
     Dates: start: 20030728, end: 20071009
  4. SYMMETREL [Concomitant]
     Dosage: 200 MG/D
     Route: 065
     Dates: start: 20060602
  5. COMTAN [Concomitant]
     Dosage: 800 MG/D
     Route: 065
     Dates: start: 20020711, end: 20071009
  6. CARBAMAZEPINE [Concomitant]
     Dosage: 400 MG/D
     Route: 065
     Dates: start: 20070127

REACTIONS (1)
  - PATHOLOGICAL GAMBLING [None]
